FAERS Safety Report 7043785-0 (Version None)
Quarter: 2010Q4

REPORT INFORMATION
  Report Type: 
  Country: None (occurrence: None)
  Receive Date: 20101008
  Receipt Date: 20101008
  Transmission Date: 20110411
  Serious: Yes (Other)
  Sender: FDA-Public Use
  Company Number: None

PATIENT
  Age: 58 Year
  Sex: Female
  Weight: 59.8748 kg

DRUGS (2)
  1. OXYCONTIN [Suspect]
     Dosage: 80 MG EVERY 12 HRS
     Dates: start: 20100916, end: 20100923
  2. OXYCONTIN [Suspect]
     Dosage: 40 MG EVERY 12 HRS
     Dates: start: 20100923

REACTIONS (7)
  - BALANCE DISORDER [None]
  - DISORIENTATION [None]
  - DIZZINESS [None]
  - FALL [None]
  - FEELING ABNORMAL [None]
  - FOOT FRACTURE [None]
  - NAUSEA [None]
